FAERS Safety Report 8279555 (Version 3)
Quarter: 2012Q4

REPORT INFORMATION
  Report Type: 
  Country: US (occurrence: US)
  Receive Date: 20111208
  Receipt Date: 20120928
  Transmission Date: 20130627
  Serious: Yes (Other)
  Sender: FDA-Public Use
  Company Number: US-US-EMD SERONO, INC.-7098907

PATIENT
  Sex: Female
  Weight: 122 kg

DRUGS (11)
  1. REBIF [Suspect]
     Indication: MULTIPLE SCLEROSIS
     Dates: start: 20070727, end: 20071222
  2. REBIF [Suspect]
     Route: 058
     Dates: start: 20090803, end: 201105
  3. METFORMIN [Concomitant]
     Indication: DIABETES MELLITUS
  4. CYMBALTA [Concomitant]
     Indication: DEPRESSION
  5. DIOVAN [Concomitant]
     Indication: HYPERTENSION
  6. CLARITIN [Concomitant]
     Indication: HYPERSENSITIVITY
  7. ABILIFY [Concomitant]
     Indication: SCHIZOPHRENIA
  8. AMBIEN [Concomitant]
     Indication: SLEEP DISORDER
  9. ZOCOR [Concomitant]
     Indication: BLOOD CHOLESTEROL INCREASED
  10. NEXIUM [Concomitant]
     Indication: GASTROOESOPHAGEAL REFLUX DISEASE
  11. XANAX [Concomitant]
     Indication: ANXIETY

REACTIONS (3)
  - Ovarian cancer [Recovering/Resolving]
  - Uterine cancer [Unknown]
  - Fibrocystic breast disease [Unknown]
